FAERS Safety Report 21672013 (Version 9)
Quarter: 2023Q1

REPORT INFORMATION
  Report Type: Spontaneous
  Country: US (occurrence: US)
  Receive Date: 20221202
  Receipt Date: 20230323
  Transmission Date: 20230418
  Serious: Yes (Other)
  Sender: FDA-Public Use
  Company Number: US-SANOFI-01385626

PATIENT
  Age: 58 Year
  Sex: Female

DRUGS (3)
  1. LANTUS SOLOSTAR [Suspect]
     Active Substance: INSULIN GLARGINE
     Indication: Type 1 diabetes mellitus
     Dosage: 52 IU, BID
     Route: 065
  2. LANTUS SOLOSTAR [Suspect]
     Active Substance: INSULIN GLARGINE
     Dosage: 52 IU, QD
  3. LANTUS SOLOSTAR [Suspect]
     Active Substance: INSULIN GLARGINE
     Dosage: 58 IU
     Dates: start: 202212, end: 202212

REACTIONS (8)
  - Impaired gastric emptying [Unknown]
  - Respiratory disorder [Unknown]
  - Blood glucose increased [Recovered/Resolved]
  - Device issue [Unknown]
  - Product dose omission issue [Unknown]
  - Blood glucose abnormal [Unknown]
  - Wrong product administered [Unknown]
  - Inappropriate schedule of product administration [Unknown]

NARRATIVE: CASE EVENT DATE: 20221101
